FAERS Safety Report 16144718 (Version 3)
Quarter: 2019Q3

REPORT INFORMATION
  Report Type: Report from Study
  Country: US (occurrence: US)
  Receive Date: 20190402
  Receipt Date: 20190926
  Transmission Date: 20191004
  Serious: No
  Sender: FDA-Public Use
  Company Number: PHEH2019US013850

PATIENT
  Age: 55 Year
  Sex: Male

DRUGS (1)
  1. COSENTYX [Suspect]
     Active Substance: SECUKINUMAB
     Indication: PSORIASIS
     Dosage: 300 MG/KG, QMO
     Route: 058
     Dates: start: 201812

REACTIONS (5)
  - Rhinorrhoea [Recovered/Resolved]
  - Psoriasis [Unknown]
  - Nasopharyngitis [Recovered/Resolved]
  - Platelet count decreased [Unknown]
  - Platelet count increased [Unknown]

NARRATIVE: CASE EVENT DATE: 201909
